FAERS Safety Report 13020472 (Version 8)
Quarter: 2017Q3

REPORT INFORMATION
  Report Type: Report from Study
  Country: US (occurrence: US)
  Receive Date: 20161212
  Receipt Date: 20170911
  Transmission Date: 20171127
  Serious: Yes (Hospitalization)
  Sender: FDA-Public Use
  Company Number: US-ACTELION-A-NJ2016-146613

PATIENT
  Age: 53 Year
  Sex: Female
  Weight: 59.41 kg

DRUGS (8)
  1. OPSUMIT [Suspect]
     Active Substance: MACITENTAN
     Indication: PULMONARY ARTERIAL HYPERTENSION
     Dosage: 10 MG, QD
     Route: 048
     Dates: start: 201505
  2. SILDENAFIL CITRATE. [Concomitant]
     Active Substance: SILDENAFIL CITRATE
     Dosage: 12.5 MG, TID
  3. TORSEMIDE. [Concomitant]
     Active Substance: TORSEMIDE
     Dosage: UNK
  4. ASPIRIN. [Concomitant]
     Active Substance: ASPIRIN
  5. VELETRI [Suspect]
     Active Substance: EPOPROSTENOL
     Indication: PULMONARY ARTERIAL HYPERTENSION
     Dosage: 12.1 NG/KG, PER MIN
     Route: 042
     Dates: start: 20151014
  6. SILDENAFIL CITRATE. [Concomitant]
     Active Substance: SILDENAFIL CITRATE
     Dosage: 10 MG, TID
     Dates: start: 201607
  7. ALDACTONE [Concomitant]
     Active Substance: SPIRONOLACTONE
     Dosage: UNK
  8. ALBUTEROL. [Concomitant]
     Active Substance: ALBUTEROL

REACTIONS (19)
  - Device dislocation [Unknown]
  - Catheter site inflammation [Unknown]
  - Catheter placement [Unknown]
  - Migraine [Unknown]
  - Palpitations [Unknown]
  - Oxygen saturation decreased [Recovering/Resolving]
  - Pulmonary oedema [Recovering/Resolving]
  - Catheter site injury [Unknown]
  - Erythema [Unknown]
  - Cellulitis [Unknown]
  - Feeling hot [Unknown]
  - Catheter site discharge [Recovered/Resolved]
  - Dyspnoea [Recovering/Resolving]
  - Hypotension [Unknown]
  - Fluid retention [Unknown]
  - Catheter site pain [Unknown]
  - Heart rate increased [Unknown]
  - Cardiac failure congestive [Unknown]
  - Hyperhidrosis [Unknown]

NARRATIVE: CASE EVENT DATE: 20161211
